FAERS Safety Report 17027758 (Version 1)
Quarter: 2019Q4

REPORT INFORMATION
  Report Type: Spontaneous
  Country: US (occurrence: US)
  Receive Date: 20191010
  Receipt Date: 20191010
  Transmission Date: 20200122
  Serious: No
  Sender: FDA-Public Use
  Company Number: None

PATIENT
  Age: 49 Year
  Sex: Female

DRUGS (11)
  1. SERTRALINE [Concomitant]
     Active Substance: SERTRALINE HYDROCHLORIDE
  2. SILDENAFIL 20MG TAB [Suspect]
     Active Substance: SILDENAFIL
     Indication: MULTIPLE SCLEROSIS
     Route: 048
     Dates: start: 20161011
  3. BACLOFEN. [Concomitant]
     Active Substance: BACLOFEN
  4. GABAPENTIN. [Concomitant]
     Active Substance: GABAPENTIN
  5. WELLBUTIN [Concomitant]
  6. COREG [Concomitant]
     Active Substance: CARVEDILOL
  7. TECFIDERA [Concomitant]
     Active Substance: DIMETHYL FUMARATE
  8. KEPPRA [Concomitant]
     Active Substance: LEVETIRACETAM
  9. LISINOPRIL. [Concomitant]
     Active Substance: LISINOPRIL
  10. ASPIRIN. [Concomitant]
     Active Substance: ASPIRIN
  11. WARFARIN [Concomitant]
     Active Substance: WARFARIN

REACTIONS (2)
  - Musculoskeletal stiffness [None]
  - Gait disturbance [None]

NARRATIVE: CASE EVENT DATE: 20190925
